FAERS Safety Report 5260498-6 (Version None)
Quarter: 2007Q1

REPORT INFORMATION
  Report Type: 
  Country: None (occurrence: None)
  Receive Date: 20070309
  Receipt Date: 20061006
  Transmission Date: 20070707
  Serious: No
  Sender: FDA-Public Use
  Company Number: US-GLAXOSMITHKLINE-A0622576A

PATIENT
  Age: 54 Year
  Sex: Female

DRUGS (1)
  1. NICORETTE [Suspect]

REACTIONS (4)
  - DYSGEUSIA [None]
  - INTENTIONAL DRUG MISUSE [None]
  - ORAL SOFT TISSUE DISORDER [None]
  - PHARMACEUTICAL PRODUCT COMPLAINT [None]
